FAERS Safety Report 5098956-X (Version None)
Quarter: 2006Q3

REPORT INFORMATION
  Report Type: 
  Country: None (occurrence: None)
  Receive Date: 20060907
  Receipt Date: 20060616
  Transmission Date: 20061208
  Serious: Yes (Death, Other)
  Sender: FDA-Public Use
  Company Number: PHHO2006BR09932

PATIENT
  Age: 80 Year
  Sex: Female
  Weight: 90 kg

DRUGS (2)
  1. ZELMAC / HTF 919A [Suspect]
     Indication: CONSTIPATION
     Dosage: 6 MG, BID
     Route: 048
     Dates: start: 20060401
  2. TRAMADOL HCL [Concomitant]

REACTIONS (2)
  - HYPERTENSION [None]
  - PANCREATIC CARCINOMA METASTATIC [None]
